FAERS Safety Report 9278285 (Version 1)
Quarter: 2013Q2

REPORT INFORMATION
  Report Type: Report from Study
  Country: JP (occurrence: JP)
  Receive Date: 20130508
  Receipt Date: 20130508
  Transmission Date: 20140414
  Serious: Yes (Other)
  Sender: FDA-Public Use
  Company Number: JP-ROCHE-1220114

PATIENT
  Sex: 0

DRUGS (2)
  1. RITUXIMAB [Suspect]
     Indication: NEPHROTIC SYNDROME
     Route: 065
  2. RITUXIMAB [Suspect]
     Indication: OFF LABEL USE

REACTIONS (5)
  - Sepsis [Recovered/Resolved]
  - Granulocytopenia [Recovered/Resolved]
  - Hepatic failure [Unknown]
  - Infusion related reaction [Unknown]
  - Pyrexia [Unknown]
